FAERS Safety Report 10432818 (Version 1)
Quarter: 2014Q3

REPORT INFORMATION
  Report Type: Spontaneous
  Country: US (occurrence: US)
  Receive Date: 20140905
  Receipt Date: 20140905
  Transmission Date: 20150326
  Serious: Yes (Other)
  Sender: FDA-Public Use
  Company Number: PHHY2014US110106

PATIENT
  Sex: Female

DRUGS (9)
  1. GABLOFEN [Suspect]
     Active Substance: BACLOFEN
     Dosage: DOSE WAS INCREASED
     Route: 037
  2. LIORESAL [Suspect]
     Active Substance: BACLOFEN
     Dosage: UNK UKN, UNK
     Route: 037
  3. TOPAMAX [Suspect]
     Active Substance: TOPIRAMATE
     Dosage: UNK UKN, UNK
  4. DIAZEPAM. [Suspect]
     Active Substance: DIAZEPAM
     Dosage: UNK UKN, PRN
  5. MORPHINE [Suspect]
     Active Substance: MORPHINE
     Dosage: UNK UKN, UNK
     Route: 037
  6. LIORESAL [Suspect]
     Active Substance: BACLOFEN
     Dosage: DOSE WAS INCREASED
     Route: 037
     Dates: start: 201312
  7. BOTOX [Suspect]
     Active Substance: ONABOTULINUMTOXINA
     Dosage: UNK UKN, UNK
  8. MIRALAX [Suspect]
     Active Substance: POLYETHYLENE GLYCOL 3350
     Dosage: UNK UKN, UNK
  9. GABLOFEN [Suspect]
     Active Substance: BACLOFEN
     Indication: MUSCLE SPASTICITY
     Dosage: UNK UKN, UNK
     Route: 037
     Dates: start: 1995

REACTIONS (10)
  - Drug withdrawal syndrome [Recovering/Resolving]
  - Muscle tightness [Recovering/Resolving]
  - Headache [Recovering/Resolving]
  - Disease progression [Recovering/Resolving]
  - Malaise [Recovering/Resolving]
  - Migraine [Recovering/Resolving]
  - Back pain [Recovering/Resolving]
  - Loss of consciousness [Recovering/Resolving]
  - Adverse drug reaction [Recovering/Resolving]
  - Muscle spasms [Recovering/Resolving]
